FAERS Safety Report 7280079-2 (Version None)
Quarter: 2011Q1

REPORT INFORMATION
  Report Type: 
  Country: None (occurrence: None)
  Receive Date: 20110208
  Receipt Date: 20110118
  Transmission Date: 20110831
  Serious: No
  Sender: FDA-Public Use
  Company Number: US-B.I. PHARMACEUTICALS,INC./RIDGEFIELD-2010-BP-05882BP

PATIENT
  Age: 66 Year
  Sex: Male

DRUGS (10)
  1. THORTHIAZONE [Concomitant]
     Indication: HYPERTENSION
     Dosage: 25 MG
  2. ACTOS [Concomitant]
     Indication: DIABETES MELLITUS
     Dosage: 30 MG
  3. CRESTOR [Concomitant]
     Indication: BLOOD CHOLESTEROL INCREASED
     Dosage: 40 MG
  4. CATAPRES-TTS-1 [Suspect]
     Dosage: 0.3 MG
     Route: 061
     Dates: start: 20100201
  5. METFORMIN HCL [Concomitant]
     Indication: DIABETES MELLITUS
     Dosage: 1 G
  6. ASPIRIN [Concomitant]
     Indication: PROPHYLAXIS
     Dosage: 81 MG
  7. CHLORTHALIDONE [Concomitant]
     Dosage: 25 MG
  8. CATAPRES-TTS-1 [Suspect]
     Indication: HYPERTENSION
     Dosage: 0.2 MG
     Route: 061
     Dates: start: 20030101, end: 20100201
  9. LISINOPRIL [Concomitant]
     Indication: HYPERTENSION
     Dosage: 80 MG
  10. METFORMIN HCL [Concomitant]
     Dosage: 2 G

REACTIONS (2)
  - BLOOD PRESSURE INADEQUATELY CONTROLLED [None]
  - HYPERTENSION [None]
